FAERS Safety Report 20167675 (Version 1)
Quarter: 2021Q4

REPORT INFORMATION
  Report Type: Spontaneous
  Country: ID (occurrence: None)
  Receive Date: 20211209
  Receipt Date: 20211209
  Transmission Date: 20220303
  Serious: Yes (Hospitalization, Other)
  Sender: FDA-Public Use
  Company Number: 2021A853903

PATIENT
  Age: 70 Year
  Sex: Male

DRUGS (2)
  1. SYMBICORT [Suspect]
     Active Substance: BUDESONIDE\FORMOTEROL FUMARATE DIHYDRATE
     Indication: Chronic obstructive pulmonary disease
     Dosage: 160/4.5 MCG,UNKNOWN UNKNOWN
     Route: 055
  2. BETADINE [Concomitant]
     Active Substance: POVIDONE-IODINE
     Route: 065

REACTIONS (6)
  - Dyspnoea [Not Recovered/Not Resolved]
  - Lung disorder [Unknown]
  - Skin exfoliation [Unknown]
  - Insomnia [Unknown]
  - Prostatic disorder [Unknown]
  - Pruritus [Unknown]
